FAERS Safety Report 10943253 (Version 2)
Quarter: 2015Q2

REPORT INFORMATION
  Report Type: Spontaneous
  Country: US (occurrence: US)
  Receive Date: 20150322
  Receipt Date: 20150525
  Transmission Date: 20150821
  Serious: Yes (Other)
  Sender: FDA-Public Use
  Company Number: US-JNJFOC-20140606198

PATIENT
  Sex: Male

DRUGS (1)
  1. RISPERDAL [Suspect]
     Active Substance: RISPERIDONE
     Indication: BIPOLAR DISORDER
     Dosage: 1MG
     Route: 048
     Dates: start: 19990117, end: 20000327

REACTIONS (4)
  - Emotional disorder [Unknown]
  - Glycosuria [Unknown]
  - Gynaecomastia [Not Recovered/Not Resolved]
  - Endocrine disorder [Unknown]

NARRATIVE: CASE EVENT DATE: 2003
